FAERS Safety Report 4458562-4 (Version None)
Quarter: 2004Q3

REPORT INFORMATION
  Report Type: 
  Country: None (occurrence: None)
  Receive Date: 20040922
  Receipt Date: 20031124
  Transmission Date: 20050211
  Serious: Yes (Other)
  Sender: FDA-Public Use
  Company Number: US-JNJFOC-20031004140

PATIENT
  Age: 35 Year
  Sex: Male

DRUGS (5)
  1. TOPAMAX [Suspect]
     Indication: DRUG USE FOR UNKNOWN INDICATION
     Dosage: ORAL
     Route: 048
  2. COUMADIN [Concomitant]
  3. IMITREX [Concomitant]
  4. LOPRESSOR [Concomitant]
  5. ACE INHIBITOR (ACE INHIBITOR NOS) [Concomitant]

REACTIONS (1)
  - ANGLE CLOSURE GLAUCOMA [None]
